FAERS Safety Report 9963510 (Version 1)
Quarter: 2014Q1

REPORT INFORMATION
  Report Type: Spontaneous
  Country: US (occurrence: US)
  Receive Date: 20140305
  Receipt Date: 20140305
  Transmission Date: 20141002
  Serious: Yes (Other)
  Sender: FDA-Public Use
  Company Number: US-TEVA-466396USA

PATIENT
  Age: 55 Year
  Sex: Female
  Weight: 55.39 kg

DRUGS (5)
  1. TREANDA [Suspect]
     Indication: NON-HODGKIN^S LYMPHOMA
     Dosage: 902
     Dates: start: 20130129, end: 201304
  2. ARMOUR THYROID [Concomitant]
     Indication: HYPOTHYROIDISM
  3. ANTIVIRALS [Concomitant]
     Indication: INFECTION
  4. ANTIBIOTICS [Concomitant]
     Indication: INFECTION
  5. RITUXIMAB [Concomitant]
     Indication: NON-HODGKIN^S LYMPHOMA
     Dosage: 12.5 MILLIGRAM DAILY;
     Route: 042
     Dates: start: 20130129, end: 201304

REACTIONS (3)
  - Pulmonary toxicity [Not Recovered/Not Resolved]
  - Mucosal inflammation [Not Recovered/Not Resolved]
  - Nausea [Recovered/Resolved]
